FAERS Safety Report 7022600-5 (Version None)
Quarter: 2010Q3

REPORT INFORMATION
  Report Type: 
  Country: None (occurrence: None)
  Receive Date: 20100930
  Receipt Date: 20100927
  Transmission Date: 20110219
  Serious: Yes (Other)
  Sender: FDA-Public Use
  Company Number: BR-PFIZER INC-2010118447

PATIENT
  Sex: Female

DRUGS (4)
  1. PIROXICAM [Suspect]
     Indication: FIBROMYALGIA
  2. IBUPROFEN [Suspect]
     Indication: FIBROMYALGIA
  3. VENLAFAXINE [Suspect]
  4. MELOXICAM [Suspect]
     Indication: FIBROMYALGIA

REACTIONS (5)
  - DRUG HYPERSENSITIVITY [None]
  - OEDEMA PERIPHERAL [None]
  - RESPIRATORY DEPRESSION [None]
  - SWELLING [None]
  - WEIGHT INCREASED [None]
